FAERS Safety Report 24433907 (Version 1)
Quarter: 2024Q4

REPORT INFORMATION
  Report Type: Spontaneous
  Country: US (occurrence: US)
  Receive Date: 20241014
  Receipt Date: 20241014
  Transmission Date: 20250114
  Serious: No
  Sender: SPROUT PHARMACEUTICALS, INC.
  Company Number: US-Sprout Pharmaceuticals, Inc.-2024SP000137

PATIENT
  Age: 37 Year
  Sex: Female

DRUGS (7)
  1. ADDYI [Suspect]
     Active Substance: FLIBANSERIN
     Indication: Product used for unknown indication
     Dosage: RX # 4124463
     Route: 048
     Dates: start: 20240405, end: 20240405
  2. FOLIC ACID [Concomitant]
     Active Substance: FOLIC ACID
     Indication: Product used for unknown indication
  3. IMITREX [Concomitant]
     Active Substance: SUMATRIPTAN SUCCINATE
     Indication: Product used for unknown indication
  4. COLLAGEN VITAMIN [Concomitant]
     Indication: Product used for unknown indication
  5. TOPAMAX [Concomitant]
     Active Substance: TOPIRAMATE
     Indication: Product used for unknown indication
  6. IBUPROFEN [Concomitant]
     Active Substance: IBUPROFEN
     Indication: Product used for unknown indication
  7. WOMEN^S ONE DAILY VITAMIN [Concomitant]
     Indication: Product used for unknown indication

REACTIONS (10)
  - Cardiac discomfort [Unknown]
  - Palpitations [Unknown]
  - Dyspnoea [Unknown]
  - Feeling abnormal [Unknown]
  - Chest pain [Unknown]
  - Heart rate increased [Unknown]
  - Headache [Unknown]
  - Ear pain [Unknown]
  - Dry mouth [Unknown]
  - Anxiety [Unknown]

NARRATIVE: CASE EVENT DATE: 20240405
